FAERS Safety Report 9612895 (Version 3)
Quarter: 2013Q4

REPORT INFORMATION
  Report Type: Report from Study
  Country: AU (occurrence: AU)
  Receive Date: 20131010
  Receipt Date: 20131024
  Transmission Date: 20140711
  Serious: Yes (Hospitalization)
  Sender: FDA-Public Use
  Company Number: PHHY2013AU112312

PATIENT
  Age: 34 Year
  Sex: Male

DRUGS (3)
  1. CLOZARIL [Suspect]
     Indication: SCHIZOPHRENIA
     Dosage: 300 MG, (100 MG MANE AND 200 MG IN NOCTE)
     Route: 048
  2. CLOZARIL [Suspect]
     Dosage: 50 MG, UNK
     Route: 048
     Dates: start: 20130924
  3. CLOZARIL [Suspect]
     Dosage: 250 MG, (100 MG MANE AND 150 MG IN NOCTE)
     Route: 048

REACTIONS (5)
  - Troponin I increased [Unknown]
  - Mental disorder [Unknown]
  - Blood glucose increased [Recovered/Resolved]
  - Blood triglycerides increased [Not Recovered/Not Resolved]
  - Drug ineffective [Unknown]
